FAERS Safety Report 10102888 (Version 1)
Quarter: 2014Q2

REPORT INFORMATION
  Report Type: Spontaneous
  Country: US (occurrence: US)
  Receive Date: 20140424
  Receipt Date: 20140424
  Transmission Date: 20141212
  Serious: No
  Sender: FDA-Public Use
  Company Number: US-BRISTOL-MYERS SQUIBB COMPANY-19971944

PATIENT
  Age: 64 Year
  Sex: Male
  Weight: 86.17 kg

DRUGS (12)
  1. ELIQUIS [Suspect]
     Indication: ATRIAL FIBRILLATION
  2. CRESTOR [Concomitant]
  3. BABY ASPIRIN [Concomitant]
  4. VITAMIN B12 [Concomitant]
  5. VITAMIN B6 [Concomitant]
  6. VITAMIN C [Concomitant]
     Dosage: 1DF= 1000 UNITS NOS.
  7. VITAMIN D [Concomitant]
     Dosage: 1DF= 10,000 UNITS NOS.
  8. COENZYME-Q10 [Concomitant]
  9. SAW PALMETTO [Concomitant]
     Dosage: 1DF= 2 PILLS.?900 MG.
  10. OMEGA-3 [Concomitant]
     Dosage: 1DF= 3 PILLS.
  11. GLUCOSAMINE [Concomitant]
     Dosage: 1DF= 3 PILLS.?GLUCOSAMINE + CHONDROITIN.
  12. CHONDROITIN [Concomitant]
     Dosage: 1DF= 3 PILLS.?GLUCOSAMINE + CHONDROITIN.

REACTIONS (1)
  - Micturition frequency decreased [Unknown]
